FAERS Safety Report 5029120-8 (Version None)
Quarter: 2006Q2

REPORT INFORMATION
  Report Type: 
  Country: None (occurrence: None)
  Receive Date: 20060613
  Receipt Date: 20060531
  Transmission Date: 20061013
  Serious: Yes (Hospitalization, Other)
  Sender: FDA-Public Use
  Company Number: PAR_0655_2006

PATIENT
  Age: 40 Year
  Sex: Female

DRUGS (2)
  1. OFLOXACIN [Suspect]
     Indication: DIARRHOEA
     Dosage: 400 MG QDAY
  2. OFLOXACIN [Suspect]
     Indication: DIARRHOEA HAEMORRHAGIC
     Dosage: 400 MG QDAY

REACTIONS (4)
  - ACUTE FEBRILE NEUTROPHILIC DERMATOSIS [None]
  - HAEMOGLOBIN DECREASED [None]
  - HEADACHE [None]
  - MYALGIA [None]
